FAERS Safety Report 10034763 (Version 1)
Quarter: 2014Q1

REPORT INFORMATION
  Report Type: Spontaneous
  Country: US (occurrence: US)
  Receive Date: 20140325
  Receipt Date: 20140325
  Transmission Date: 20141002
  Serious: Yes (Other)
  Sender: FDA-Public Use
  Company Number: US-BAYER-2014-043002

PATIENT
  Sex: Female

DRUGS (3)
  1. GIANVI [Suspect]
     Dosage: UNK
     Route: 048
     Dates: start: 2010
  2. YAZ [Suspect]
     Dosage: UNK
     Route: 048
     Dates: start: 2010
  3. YASMIN [Suspect]
     Dosage: UNK
     Route: 048
     Dates: start: 2010

REACTIONS (4)
  - Pulmonary embolism [None]
  - Pain [None]
  - Injury [None]
  - Fear of disease [None]
